FAERS Safety Report 21934335 (Version 1)
Quarter: 2023Q1

REPORT INFORMATION
  Report Type: Spontaneous
  Country: US (occurrence: US)
  Receive Date: 20230201
  Receipt Date: 20230201
  Transmission Date: 20230418
  Serious: No
  Sender: FDA-Public Use
  Company Number: US-TAKEDA-2023TUS009820

PATIENT
  Sex: Male

DRUGS (1)
  1. ELAPRASE [Suspect]
     Active Substance: IDURSULFASE
     Indication: Mucopolysaccharidosis II
     Dosage: 2 DOSAGE FORM
     Route: 065

REACTIONS (3)
  - Respiratory disorder [Unknown]
  - Catheter site infection [Unknown]
  - Chills [Unknown]

NARRATIVE: CASE EVENT DATE: 20220101
